FAERS Safety Report 9178055 (Version 2)
Quarter: 2013Q2

REPORT INFORMATION
  Report Type: Spontaneous
  Country: JP (occurrence: JP)
  Receive Date: 20130321
  Receipt Date: 20130430
  Transmission Date: 20140414
  Serious: Yes (Other)
  Sender: FDA-Public Use
  Company Number: JP-OTSUKA-JP-2013-10693

PATIENT
  Age: 30 Year
  Sex: Male

DRUGS (3)
  1. PLETAAL [Suspect]
     Indication: BRUGADA SYNDROME
     Dosage: 200 MG MILLIGRAM(S), DAILY DOSE
     Route: 048
     Dates: start: 201106
  2. PLETAAL [Suspect]
     Indication: OFF LABEL USE
  3. BEPRIDIL HYDROCHLORIDE HYDRATE [Concomitant]
     Dosage: 100 MG MILLIGRAM(S), DAILY DOSE
     Route: 048
     Dates: start: 201107

REACTIONS (2)
  - Ventricular fibrillation [Recovered/Resolved]
  - Off label use [None]
